FAERS Safety Report 7703881-9 (Version None)
Quarter: 2011Q3

REPORT INFORMATION
  Report Type: 
  Country: None (occurrence: None)
  Receive Date: 20110823
  Receipt Date: 20110809
  Transmission Date: 20111222
  Serious: Yes (Hospitalization)
  Sender: FDA-Public Use
  Company Number: US-ELI_LILLY_AND_COMPANY-US201105004959

PATIENT
  Sex: Female

DRUGS (9)
  1. EVISTA [Suspect]
     Dosage: UNK
     Dates: end: 20101101
  2. METOPROLOL [Concomitant]
     Dosage: 25 MG, UNKNOWN
  3. FORTEO [Suspect]
     Dosage: 20 UG, QD
  4. VITAMIN D [Concomitant]
  5. PRADAXA [Concomitant]
  6. FORTEO [Suspect]
     Dosage: 20 UG, QD
  7. CALCIUM CARBONATE [Concomitant]
     Dosage: 1500 MG, UNK
  8. FORTEO [Suspect]
     Indication: OSTEOPOROSIS
     Dosage: 20 UG, QD
  9. A + D OINTMENT [Concomitant]
     Indication: DYSPNOEA

REACTIONS (30)
  - HEAD DISCOMFORT [None]
  - CHEST DISCOMFORT [None]
  - THIRST [None]
  - ARTHRITIS [None]
  - DIZZINESS [None]
  - NAUSEA [None]
  - INJECTION SITE ERYTHEMA [None]
  - MUSCULAR WEAKNESS [None]
  - HEADACHE [None]
  - INSOMNIA [None]
  - HOSPITALISATION [None]
  - BLOOD DISORDER [None]
  - ILL-DEFINED DISORDER [None]
  - DISCOMFORT [None]
  - VARICOSE VEIN [None]
  - DIPLEGIA [None]
  - INJECTION SITE HAEMATOMA [None]
  - DYSPEPSIA [None]
  - HYPOTENSION [None]
  - EYE MOVEMENT DISORDER [None]
  - PAIN IN EXTREMITY [None]
  - CONSTIPATION [None]
  - ARTHRALGIA [None]
  - CHEST PAIN [None]
  - DYSGEUSIA [None]
  - VOMITING [None]
  - MUSCLE SPASMS [None]
  - MIDDLE INSOMNIA [None]
  - ASTHENIA [None]
  - HEART RATE INCREASED [None]
